FAERS Safety Report 5502131-1 (Version None)
Quarter: 2007Q4

REPORT INFORMATION
  Report Type: 
  Country: None (occurrence: None)
  Receive Date: 20071030
  Receipt Date: 20071022
  Transmission Date: 20080405
  Serious: Yes (Hospitalization, Other)
  Sender: FDA-Public Use
  Company Number: BR-ASTRAZENECA-2003UW04741

PATIENT
  Age: 57 Year
  Sex: Female
  Weight: 117 kg

DRUGS (9)
  1. SYMBICORT [Suspect]
     Indication: ASTHMA
     Dosage: 160/4.5 UG
     Route: 055
     Dates: start: 20020101
  2. HIDROCLORITIAZIDA [Concomitant]
     Indication: DIURETIC THERAPY
     Route: 048
     Dates: start: 20020101
  3. MONOCORDIL [Concomitant]
     Indication: HYPERTENSION
     Route: 048
     Dates: start: 20000101
  4. DIAZEPAM [Concomitant]
     Indication: SEDATIVE THERAPY
     Route: 048
  5. MALEATO DE ENALAPRIL [Concomitant]
     Indication: HYPERTENSION
     Route: 048
     Dates: start: 20020101
  6. ATENSINA [Concomitant]
     Indication: HYPERTENSION
     Route: 048
     Dates: start: 19980101
  7. LIPITOR [Concomitant]
     Indication: BLOOD TRIGLYCERIDES
     Route: 048
     Dates: start: 20050101
  8. SINVASTATINA [Concomitant]
     Indication: HYPERCHOLESTEROLAEMIA
     Route: 048
     Dates: start: 20050101
  9. ASPIRIN [Concomitant]
     Indication: ANTICOAGULANT THERAPY
     Route: 048
     Dates: start: 20050101

REACTIONS (6)
  - CONTUSION [None]
  - GLAUCOMA [None]
  - MALAISE [None]
  - MYOCARDIAL ISCHAEMIA [None]
  - RETINAL DETACHMENT [None]
  - TACHYCARDIA [None]
